FAERS Safety Report 13498403 (Version 1)
Quarter: 2017Q2

REPORT INFORMATION
  Report Type: Spontaneous
  Country: US (occurrence: US)
  Receive Date: 20170430
  Receipt Date: 20170430
  Transmission Date: 20170830
  Serious: Yes (Hospitalization, Other)
  Sender: FDA-Public Use
  Company Number: US-ASTRAZENECA-2017SE43195

PATIENT
  Age: 625 Month
  Sex: Female
  Weight: 68 kg

DRUGS (7)
  1. ZIPRASIDONE. [Suspect]
     Active Substance: ZIPRASIDONE
     Indication: BIPOLAR DISORDER
     Dosage: 80 MG 2 AT NIGHT
     Route: 048
     Dates: end: 201703
  2. ZIPRASIDONE. [Suspect]
     Active Substance: ZIPRASIDONE
     Indication: MAJOR DEPRESSION
     Dosage: 80 MG 2 AT NIGHT
     Route: 048
     Dates: end: 201703
  3. DULOXETINE. [Concomitant]
     Active Substance: DULOXETINE
     Indication: DEPRESSION
     Dosage: GENERIC 60 MG 2 AT NIGHT
  4. SEROQUEL [Suspect]
     Active Substance: QUETIAPINE FUMARATE
     Route: 048
  5. DULOXETINE. [Concomitant]
     Active Substance: DULOXETINE
     Indication: DEPRESSION
     Dosage: CYMBALTA
  6. ZIPRASIDONE. [Suspect]
     Active Substance: ZIPRASIDONE
     Indication: PANIC DISORDER
     Dosage: 80 MG 2 AT NIGHT
     Route: 048
     Dates: end: 201703
  7. ZIPRASIDONE. [Suspect]
     Active Substance: ZIPRASIDONE
     Indication: ANXIETY
     Dosage: 80 MG 2 AT NIGHT
     Route: 048
     Dates: end: 201703

REACTIONS (14)
  - Asthenia [Not Recovered/Not Resolved]
  - Road traffic accident [Recovered/Resolved]
  - Abdominal discomfort [Not Recovered/Not Resolved]
  - Disturbance in attention [Not Recovered/Not Resolved]
  - Sedation [Unknown]
  - Weight increased [Unknown]
  - Nausea [Not Recovered/Not Resolved]
  - Anxiety [Unknown]
  - Brain oedema [Unknown]
  - Feeling abnormal [Unknown]
  - Procedural headache [Unknown]
  - Bipolar disorder [Not Recovered/Not Resolved]
  - Malaise [Unknown]
  - Insomnia [Not Recovered/Not Resolved]

NARRATIVE: CASE EVENT DATE: 201611
